FAERS Safety Report 10568068 (Version 1)
Quarter: 2014Q4

REPORT INFORMATION
  Report Type: Spontaneous
  Country: SZ (occurrence: None)
  Receive Date: 20141104
  Receipt Date: 20141104
  Transmission Date: 20150529
  Serious: Yes (Other)
  Sender: FDA-Public Use
  Company Number: 20140695

PATIENT
  Age: 69 Year
  Sex: Female

DRUGS (13)
  1. ARANESP [Concomitant]
     Active Substance: DARBEPOETIN ALFA
  2. CALPEROS (CALCIUM CARBONATE) [Concomitant]
  3. CONTIX (PANTOPRAZOLE) [Concomitant]
  4. VENOFER [Suspect]
     Active Substance: IRON SUCROSE
     Indication: IRON DEFICIENCY ANAEMIA
     Dosage: 3 IN 1 WK
     Route: 042
     Dates: start: 20140826, end: 20141008
  5. ACIDUM FOLLICUM (FOLIC ACID) [Concomitant]
  6. ALFADIOL (ALFACALCIDOL) [Concomitant]
  7. ATARAX [Concomitant]
     Active Substance: HYDROXYZINE\HYDROXYZINE HYDROCHLORIDE
  8. BETALOC ZOK (METOPROLOL SUCCINATE) [Concomitant]
  9. MILURIT (ALLOPURINOL) [Concomitant]
  10. CLEXANE (ENOXAPARIN SODIUM) [Concomitant]
     Active Substance: ENOXAPARIN SODIUM
  11. IZOPTIN (VERAPAMIL HYDROCHLORIDE) [Concomitant]
  12. DOXEPIN [Concomitant]
     Active Substance: DOXEPIN
  13. IPOREL (CLONIDINE HYDROCHLORIDE) [Concomitant]

REACTIONS (4)
  - Dyspnoea [None]
  - Chest discomfort [None]
  - Blood pressure increased [None]
  - Malaise [None]

NARRATIVE: CASE EVENT DATE: 20141008
